FAERS Safety Report 7644153-0 (Version None)
Quarter: 2011Q3

REPORT INFORMATION
  Report Type: 
  Country: None (occurrence: None)
  Receive Date: 20110729
  Receipt Date: 20110715
  Transmission Date: 20111222
  Serious: Yes (Other)
  Sender: FDA-Public Use
  Company Number: US-RANBAXY-2011US-46241

PATIENT
  Age: 49 Year
  Sex: Male

DRUGS (3)
  1. ATENOLOL [Suspect]
     Dosage: 50 MG, SINGLE
     Route: 065
  2. LOSARTAN POTASSIUM [Suspect]
     Indication: HYPERTENSION
     Dosage: 25.000000 MG, UNK
     Route: 065
  3. HYDROCHLOROTHIAZIDE [Suspect]
     Indication: HYPERTENSION
     Dosage: 25 MG, SINGLE
     Route: 065

REACTIONS (1)
  - ERECTILE DYSFUNCTION [None]
